FAERS Safety Report 6903131-7 (Version None)
Quarter: 2010Q3

REPORT INFORMATION
  Report Type: 
  Country: None (occurrence: None)
  Receive Date: 20100803
  Receipt Date: 20080627
  Transmission Date: 20110219
  Serious: No
  Sender: FDA-Public Use
  Company Number: US-PFIZER INC-2008041063

PATIENT
  Sex: Female
  Weight: 50 kg

DRUGS (2)
  1. LYRICA [Suspect]
     Indication: FIBROMYALGIA
     Dates: start: 20080307
  2. LYRICA [Suspect]
     Indication: BACK DISORDER

REACTIONS (2)
  - FATIGUE [None]
  - HOT FLUSH [None]
